FAERS Safety Report 18023208 (Version 4)
Quarter: 2020Q3

REPORT INFORMATION
  Report Type: Report from Study
  Country: BR (occurrence: BR)
  Receive Date: 20200714
  Receipt Date: 20200727
  Transmission Date: 20201103
  Serious: Yes (Hospitalization)
  Sender: FDA-Public Use
  Company Number: BR-SA-2020SA175157

PATIENT

DRUGS (7)
  1. AZITHROMYCIN ANHYDROUS. [Concomitant]
     Active Substance: AZITHROMYCIN ANHYDROUS
     Indication: PRE-EXISTING DISEASE
     Dosage: 500 MG, PRN
     Route: 042
     Dates: start: 20200618
  2. METHYLPREDNISOLONE. [Concomitant]
     Active Substance: METHYLPREDNISOLONE
     Indication: PRE-EXISTING DISEASE
     Dosage: 125 MG, QD
     Route: 042
     Dates: start: 20200619
  3. FUROSEMIDE. [Concomitant]
     Active Substance: FUROSEMIDE
     Dosage: 20 MG, PRN
     Route: 042
     Dates: start: 20200621, end: 20200711
  4. SARILUMAB [Suspect]
     Active Substance: SARILUMAB
     Indication: COVID-19
     Dosage: , INFUSION RATE 100 ML/H, 1 BAG 1 DF, 1X
     Route: 042
     Dates: start: 20200618, end: 20200618
  5. DIPIRONE [Concomitant]
     Active Substance: METAMIZOLE SODIUM
     Indication: PRE-EXISTING DISEASE
     Dosage: 1000 MG, PRN
     Route: 042
     Dates: start: 20200618
  6. POTASSIUM PHOSPHATE [POTASSIUM PHOSPHATE DIBASIC] [Concomitant]
     Indication: PRE-EXISTING DISEASE
     Dosage: 2 DF (AMPULE), PRN
     Route: 042
     Dates: start: 20200625, end: 20200625
  7. CLAVULIN [AMOXICILLIN SODIUM;CLAVULANATE POTASSIUM] [Concomitant]
     Active Substance: AMOXICILLIN\CLAVULANATE POTASSIUM
     Indication: PRE-EXISTING DISEASE
     Dosage: 2 G, PRN
     Route: 042
     Dates: start: 20200618

REACTIONS (1)
  - Pneumonia [Recovered/Resolved]

NARRATIVE: CASE EVENT DATE: 20200705
